FAERS Safety Report 4716313-X (Version None)
Quarter: 2005Q3

REPORT INFORMATION
  Report Type: 
  Country: None (occurrence: None)
  Receive Date: 20050711
  Receipt Date: 20050114
  Transmission Date: 20060218
  Serious: No
  Sender: FDA-Public Use
  Company Number: 392588

PATIENT
  Age: 65 Year
  Sex: Female
  Weight: 59 kg

DRUGS (12)
  1. CELLCEPT [Suspect]
     Indication: AUTOIMMUNE HEPATITIS
     Dosage: 2000 MG DAILY ORAL
     Route: 048
     Dates: start: 20031015, end: 20050115
  2. FOSAMAX [Concomitant]
  3. ESTRADIOL [Concomitant]
  4. SYNTHROID [Concomitant]
  5. PREVACID [Concomitant]
  6. GLIPIZIDE [Concomitant]
  7. PREDNISONE [Concomitant]
  8. WELCHOL (COLESVELAM HCL) [Concomitant]
  9. ZETIA [Concomitant]
  10. URSO (URSODIOL) [Concomitant]
  11. GLUCOSAMINE SULFATE/CHONDROITIN (CHONDROTIN SULFATE/GLUCOSAMINE) [Concomitant]
  12. CALCIUM (CALCIUM NOS) [Concomitant]

REACTIONS (1)
  - SQUAMOUS CELL CARCINOMA [None]
